FAERS Safety Report 10214138 (Version 1)
Quarter: 2014Q2

REPORT INFORMATION
  Report Type: Spontaneous
  Country: US (occurrence: US)
  Receive Date: 20140603
  Receipt Date: 20140603
  Transmission Date: 20141212
  Serious: Yes (Other)
  Sender: FDA-Public Use
  Company Number: US-GILEAD-2014-0103529

PATIENT
  Age: 53 Year
  Sex: Male
  Weight: 81.63 kg

DRUGS (12)
  1. SOVALDI [Suspect]
     Indication: HEPATITIS C
     Dosage: 400 MG, UNK
     Route: 065
  2. ULTRAM                             /00599202/ [Suspect]
     Indication: PAIN
     Dosage: 50 MG, PRN
     Route: 048
  3. SIMEPREVIR [Suspect]
     Indication: HEPATITIS C
     Dosage: 150 MG, QD
     Route: 048
     Dates: start: 20140310
  4. PROZAC [Suspect]
     Indication: DEPRESSION
     Dosage: 40 MG, QD
     Route: 048
  5. ELAVIL                             /00002202/ [Suspect]
     Indication: SLEEP DISORDER
     Dosage: UNK UNK, PRN
     Route: 048
  6. URSODIOL [Concomitant]
  7. PANTOPRAZOLE [Concomitant]
     Dosage: UNK
  8. OXYCODONE [Concomitant]
     Dosage: UNK
  9. AMITRIPTYLINE [Concomitant]
  10. TACROLIMUS [Concomitant]
     Dosage: UNK
  11. MYCOPHENOLATE MOFETIL [Concomitant]
     Dosage: UNK
  12. METOPROLOL [Concomitant]
     Dosage: UNK

REACTIONS (3)
  - Serotonin syndrome [Recovered/Resolved]
  - Convulsion [Recovered/Resolved]
  - Off label use [Unknown]
